FAERS Safety Report 7327059-6 (Version None)
Quarter: 2011Q1

REPORT INFORMATION
  Report Type: 
  Country: None (occurrence: None)
  Receive Date: 20110218
  Receipt Date: 20110207
  Transmission Date: 20110831
  Serious: Yes (Other)
  Sender: FDA-Public Use
  Company Number: 2010AL002997

PATIENT
  Age: 76 Year
  Sex: Male
  Weight: 78.9259 kg

DRUGS (16)
  1. METOCLOPRAMIDE [Suspect]
     Indication: IMPAIRED GASTRIC EMPTYING
     Dosage: 10 MG, QD;
     Dates: start: 20080418, end: 20081117
  2. BELLADONNA TINCTURE [Concomitant]
  3. PHENOBARBITAL [Concomitant]
  4. PRILOSEC [Concomitant]
  5. ATENOLOL [Concomitant]
  6. NORVASC [Concomitant]
  7. ACIPHEX [Concomitant]
  8. CARAFATE [Concomitant]
  9. INDOMETHACIN [Concomitant]
  10. LANOXIN [Concomitant]
  11. ZANTAC [Concomitant]
  12. LISINOPRIL [Concomitant]
  13. CARDURA [Concomitant]
  14. NITROGLYCERIN [Concomitant]
  15. DARVOCET-N 100 [Concomitant]
  16. NEXIUM [Concomitant]

REACTIONS (27)
  - DRUG INEFFECTIVE [None]
  - CONSTIPATION [None]
  - FATIGUE [None]
  - DECREASED APPETITE [None]
  - GASTRIC POLYPS [None]
  - HIATUS HERNIA [None]
  - GASTROOESOPHAGEAL REFLUX DISEASE [None]
  - URINARY HESITATION [None]
  - PROSTATIC SPECIFIC ANTIGEN INCREASED [None]
  - MALAISE [None]
  - DYSKINESIA [None]
  - ARTHRALGIA [None]
  - DIZZINESS [None]
  - PRODUCT SUBSTITUTION ISSUE [None]
  - PAIN [None]
  - NAUSEA [None]
  - URINARY TRACT DISORDER [None]
  - IMPAIRED GASTRIC EMPTYING [None]
  - ABDOMINAL PAIN [None]
  - EAR PAIN [None]
  - TARDIVE DYSKINESIA [None]
  - GASTRITIS [None]
  - DYSURIA [None]
  - HYPOTENSION [None]
  - HICCUPS [None]
  - WEIGHT DECREASED [None]
  - PROSTATIC SPECIFIC ANTIGEN [None]
